FAERS Safety Report 25838524 (Version 1)
Quarter: 2025Q3

REPORT INFORMATION
  Report Type: Spontaneous
  Country: EU (occurrence: EU)
  Receive Date: 20250923
  Receipt Date: 20250923
  Transmission Date: 20251021
  Serious: Yes (Other)
  Sender: ABBVIE
  Company Number: None

PATIENT
  Age: 65 Year
  Sex: Female

DRUGS (2)
  1. RINVOQ [Suspect]
     Active Substance: UPADACITINIB
     Indication: Rheumatoid arthritis
     Dosage: PROLONGED-RELEASE TABLETS?STRENGTH:15 MG
     Route: 048
     Dates: start: 20250317, end: 20250908
  2. Trexan [Concomitant]
     Indication: Rheumatoid arthritis
     Route: 048
     Dates: start: 20240403

REACTIONS (1)
  - Retinal vein thrombosis [Recovering/Resolving]

NARRATIVE: CASE EVENT DATE: 20250709
